FAERS Safety Report 5349747-3 (Version None)
Quarter: 2007Q2

REPORT INFORMATION
  Report Type: 
  Country: None (occurrence: None)
  Receive Date: 20070607
  Receipt Date: 20070601
  Transmission Date: 20071010
  Serious: Yes (Hospitalization, Other)
  Sender: FDA-Public Use
  Company Number: SE-GENENTECH-242349

PATIENT

DRUGS (1)
  1. NUTROPIN AQ [Suspect]
     Indication: OSTEOPOROSIS
     Route: 058

REACTIONS (1)
  - FRACTURE [None]
